FAERS Safety Report 16165962 (Version 1)
Quarter: 2019Q2

REPORT INFORMATION
  Report Type: Spontaneous
  Country: US (occurrence: US)
  Receive Date: 20190406
  Receipt Date: 20190406
  Transmission Date: 20190711
  Serious: Yes (Hospitalization, Other)
  Sender: FDA-Public Use
  Company Number: US-ABBVIE-19K-163-2733408-00

PATIENT

DRUGS (1)
  1. VENCLEXTA [Suspect]
     Active Substance: VENETOCLAX
     Indication: ACUTE MYELOID LEUKAEMIA
     Route: 048
     Dates: start: 201902

REACTIONS (5)
  - Body temperature increased [Recovered/Resolved]
  - Tremor [Recovered/Resolved]
  - Leukaemia [Unknown]
  - Sepsis [Unknown]
  - Chills [Recovered/Resolved]
